FAERS Safety Report 15211970 (Version 2)
Quarter: 2019Q4

REPORT INFORMATION
  Report Type: Report from Study
  Country: None (occurrence: BR)
  Receive Date: 20180729
  Receipt Date: 20191024
  Transmission Date: 20200122
  Serious: Yes (Other)
  Sender: FDA-Public Use
  Company Number: BR-ABBVIE-14K-020-1287183-00

PATIENT
  Age: 30 Year
  Sex: Female
  Weight: 59 kg

DRUGS (6)
  1. CONTRACEPTIVES [Concomitant]
     Active Substance: UNSPECIFIED INGREDIENT
     Indication: CONTRACEPTION
     Route: 048
     Dates: start: 2012
  2. HUMIRA [Suspect]
     Active Substance: ADALIMUMAB
     Indication: CROHN^S DISEASE
     Dosage: LOADING DOSE, WEEK 0
     Route: 058
     Dates: start: 20140117, end: 20140117
  3. HUMIRA [Suspect]
     Active Substance: ADALIMUMAB
     Dosage: LOADING DOSE, WEEK 2
     Route: 058
     Dates: start: 2014, end: 2014
  4. HUMIRA [Suspect]
     Active Substance: ADALIMUMAB
     Route: 058
  5. HUMIRA [Suspect]
     Active Substance: ADALIMUMAB
     Route: 058
     Dates: start: 201802
  6. AIXA [Concomitant]
     Indication: CONTRACEPTION
     Route: 048
     Dates: start: 2008

REACTIONS (22)
  - Headache [Recovered/Resolved]
  - Gastrointestinal disorder [Unknown]
  - Gastrointestinal inflammation [Unknown]
  - Weight increased [Not Recovered/Not Resolved]
  - Gluten sensitivity [Unknown]
  - Oral herpes [Recovering/Resolving]
  - Abdominal pain [Recovered/Resolved]
  - Muscle spasms [Recovered/Resolved]
  - Arthralgia [Recovered/Resolved]
  - Diarrhoea [Recovered/Resolved]
  - Alopecia [Not Recovered/Not Resolved]
  - Crying [Recovered/Resolved]
  - Crohn^s disease [Recovering/Resolving]
  - Blood iron decreased [Unknown]
  - Vitamin B12 abnormal [Unknown]
  - Blood sodium increased [Unknown]
  - Therapeutic response shortened [Recovered/Resolved]
  - Pharyngitis [Recovered/Resolved]
  - Suture related complication [Unknown]
  - Anxiety [Recovered/Resolved]
  - Inflammation [Unknown]
  - Conjunctivitis [Recovered/Resolved]

NARRATIVE: CASE EVENT DATE: 2014
